FAERS Safety Report 8480786 (Version 3)
Quarter: 2014Q2

REPORT INFORMATION
  Report Type: Report from Study
  Country: AT (occurrence: AT)
  Receive Date: 20120328
  Receipt Date: 20140604
  Transmission Date: 20141212
  Serious: Yes (Hospitalization)
  Sender: FDA-Public Use
  Company Number: AT-CELGENEUS-009-21880-11081581

PATIENT
  Age: 68 Year
  Sex: Female
  Weight: 75 kg

DRUGS (25)
  1. REVLIMID [Suspect]
     Indication: PLASMA CELL MYELOMA
     Dosage: 25 MILLIGRAM
     Route: 048
     Dates: start: 20110809, end: 20110829
  2. REVLIMID [Suspect]
     Dosage: 25 MILLIGRAM
     Route: 048
     Dates: start: 20110908, end: 20110912
  3. CARFILZOMIB [Suspect]
     Indication: PLASMA CELL MYELOMA
     Dosage: 36 MILLIGRAM
     Route: 041
     Dates: start: 20110809, end: 20110810
  4. CARFILZOMIB [Suspect]
     Dosage: 50 MILLIGRAM
     Route: 041
     Dates: start: 20110816, end: 20110817
  5. CARFILZOMIB [Suspect]
     Dosage: 49.7 MILLIGRAM
     Route: 041
     Dates: start: 20110823, end: 20110824
  6. CARFILZOMIB [Suspect]
     Dosage: 49.7 MILLIGRAM
     Route: 041
     Dates: start: 20110906, end: 20110907
  7. CARFILZOMIB [Suspect]
     Dosage: 49.7 MILLIGRAM
     Route: 041
     Dates: start: 20110913, end: 20110914
  8. DEXAMETHASONE [Suspect]
     Indication: PLASMA CELL MYELOMA
     Route: 065
     Dates: start: 20110809, end: 20110830
  9. DEXAMETHASONE [Suspect]
     Route: 065
     Dates: start: 20110906
  10. DEXAMETHASONE [Suspect]
     Route: 065
  11. CALCITONIN [Concomitant]
     Indication: PROPHYLAXIS
     Dosage: 3 DOSAGE FORMS
     Route: 045
     Dates: start: 20110728, end: 20110815
  12. CIPROXIN [Concomitant]
     Indication: ANTIBIOTIC PROPHYLAXIS
     Dosage: 500 MILLIGRAM
     Route: 048
     Dates: start: 20110809, end: 20110817
  13. ITERIUM [Concomitant]
     Indication: HYPERTONIA
     Dosage: 1 MILLIGRAM
     Route: 048
     Dates: start: 201007, end: 201107
  14. NEBILAN [Concomitant]
     Indication: HYPERTONIA
     Dosage: 5 MILLIGRAM
     Route: 048
  15. PANTOLOC [Concomitant]
     Indication: DRUG THERAPY
     Dosage: 40 MILLIGRAM
     Route: 048
     Dates: start: 20110809
  16. SIMVASTATIN [Concomitant]
     Indication: PROPHYLAXIS
     Dosage: 20 MILLIGRAM
     Route: 048
     Dates: start: 201004
  17. UROSIN [Concomitant]
     Indication: PROPHYLAXIS
     Dosage: 100 MILLIGRAM
     Route: 048
     Dates: start: 20110809
  18. VALTREX [Concomitant]
     Indication: ANTIVIRAL PROPHYLAXIS
     Dosage: 1500 MILLIGRAM
     Route: 048
     Dates: start: 20110809
  19. GLANDOMED [Concomitant]
     Indication: PROPHYLAXIS
     Dosage: 4 DOSAGE FORMS
     Route: 048
     Dates: start: 20110811
  20. LASIX [Concomitant]
     Indication: HYPERTONIA
     Route: 048
     Dates: start: 20110811, end: 20111018
  21. MYCOSTATIN [Concomitant]
     Indication: PROPHYLAXIS
     Dosage: 1500000 IU (INTERNATIONAL UNIT)
     Route: 048
     Dates: start: 20110811, end: 201109
  22. AUGMENTIN [Concomitant]
     Indication: ANTIBIOTIC PROPHYLAXIS
     Dosage: 2 GRAM
     Route: 048
     Dates: start: 20110818, end: 20110823
  23. PAMITOR [Concomitant]
     Indication: PLASMA CELL MYELOMA
     Route: 041
     Dates: start: 20090507
  24. MARCOUMAR [Concomitant]
     Indication: ANTICOAGULANT THERAPY
     Route: 048
     Dates: start: 20110809, end: 20111020
  25. MARCOUMAR [Concomitant]
     Indication: ANTIPLATELET THERAPY

REACTIONS (3)
  - Ventricular arrhythmia [Recovered/Resolved]
  - Pyrexia [Recovered/Resolved]
  - Asthenia [Recovered/Resolved]
